FAERS Safety Report 19074558 (Version 2)
Quarter: 2021Q1

REPORT INFORMATION
  Report Type: Spontaneous
  Country: FR (occurrence: FR)
  Receive Date: 20210330
  Receipt Date: 20210330
  Transmission Date: 20210420
  Serious: Yes (Other)
  Sender: FDA-Public Use
  Company Number: NVSC2021FR064556

PATIENT
  Age: 77 Year
  Sex: Female

DRUGS (3)
  1. SANDOSTATINE [Suspect]
     Active Substance: OCTREOTIDE ACETATE
     Indication: OVARIAN CANCER
     Dosage: 600 UG, QD (24 H EVERY DAY (CONTINUOUS)
     Route: 065
     Dates: start: 202101
  2. SANDOSTATINE [Suspect]
     Active Substance: OCTREOTIDE ACETATE
     Indication: METASTASES TO STOMACH
  3. SANDOSTATINE [Suspect]
     Active Substance: OCTREOTIDE ACETATE

REACTIONS (4)
  - Hypoaesthesia [Unknown]
  - Neuropathy peripheral [Unknown]
  - Pain in extremity [Unknown]
  - Product use in unapproved indication [Unknown]
